FAERS Safety Report 7468358-7 (Version None)
Quarter: 2011Q2

REPORT INFORMATION
  Report Type: 
  Country: None (occurrence: None)
  Receive Date: 20110509
  Receipt Date: 20100331
  Transmission Date: 20111010
  Serious: Yes (Other)
  Sender: FDA-Public Use
  Company Number: US-BAYER-201030080NA

PATIENT
  Age: 54 Year
  Sex: Male
  Weight: 168.71 kg

DRUGS (25)
  1. LIPITOR [Concomitant]
     Dosage: 40 MG, QD
     Route: 048
  2. KEFZOL [Concomitant]
     Dosage: 2 G, UNK
     Route: 042
     Dates: start: 20021017
  3. LASIX [Concomitant]
     Dosage: 320 MG, BID
     Route: 048
  4. DIOVAN [Concomitant]
     Dosage: 160 MG, QD
     Route: 048
  5. ACETYLSALICYLIC ACID SRT [Concomitant]
     Dosage: 325 MG, QD
     Route: 048
  6. HEPARIN [Concomitant]
     Dosage: 530 MG, UNK
     Route: 042
     Dates: start: 20021017
  7. TRASYLOL [Suspect]
     Indication: CORONARY ARTERY BYPASS
     Dosage: 1 ML, TEST DOSE
     Route: 042
     Dates: start: 20021017
  8. TRASYLOL [Suspect]
     Dosage: 25ML/HR, INFUSION
     Route: 042
     Dates: start: 20021017
  9. NEURONTIN [Concomitant]
     Dosage: 300 MG, TID
     Route: 048
  10. INSULIN [Concomitant]
  11. HEPARIN [Concomitant]
     Dosage: 100 MG, UNK
     Route: 042
     Dates: start: 20021017
  12. LIDOCAINE [Concomitant]
     Dosage: 100 MG, UNK
     Route: 042
     Dates: start: 20021017
  13. TENORMIN [Concomitant]
     Dosage: 100 MG, BID
     Route: 048
  14. HEPARIN [Concomitant]
     Dosage: 100 MG, UNK
     Route: 042
     Dates: start: 20021017
  15. MANNITOL [Concomitant]
     Dosage: 12.5 G, UNK
     Route: 042
     Dates: start: 20021017
  16. TRASYLOL [Suspect]
     Dosage: 100 ML, PUMP PRIME
     Route: 042
     Dates: start: 20021017
  17. TRASYLOL [Suspect]
     Dosage: 200 ML, LOADING DOSE
     Route: 042
     Dates: start: 20021017
  18. PROPOFOL [Concomitant]
     Dosage: UNK
     Route: 042
     Dates: start: 20021017
  19. HEPARIN [Concomitant]
     Dosage: 20000 U, UNK
     Route: 042
     Dates: start: 20021017
  20. ACETAMINOPHEN [Concomitant]
  21. PROTAMINE [Concomitant]
     Dosage: 50 MG, UNK
     Route: 042
     Dates: start: 20021017
  22. HEPARIN [Concomitant]
     Dosage: 100 MG, UNK
     Route: 042
     Dates: start: 20021017
  23. HEPARIN [Concomitant]
     Dosage: 100 MG, UNK
     Route: 042
     Dates: start: 20021017
  24. INSULIN [Concomitant]
     Dosage: UNK
     Route: 042
     Dates: start: 20021017
  25. PROTAMINE [Concomitant]
     Dosage: 750 MG, UNK
     Route: 042
     Dates: start: 20021017

REACTIONS (11)
  - PAIN [None]
  - RENAL INJURY [None]
  - ANHEDONIA [None]
  - DISABILITY [None]
  - RENAL FAILURE [None]
  - DEPRESSION [None]
  - INJURY [None]
  - ANXIETY [None]
  - EMOTIONAL DISTRESS [None]
  - MULTI-ORGAN FAILURE [None]
  - FEAR [None]
